FAERS Safety Report 8884810 (Version 1)
Quarter: 2012Q4

REPORT INFORMATION
  Report Type: 
  Country: US (occurrence: US)
  Receive Date: 20121102
  Receipt Date: 20121102
  Transmission Date: 20130627
  Serious: Yes (Hospitalization)
  Sender: FDA-Public Use
  Company Number: US-B.I. PHARMACEUTICALS,INC./RIDGEFIELD-2012-BP-26958BP

PATIENT

DRUGS (1)
  1. PRADAXA [Suspect]
     Dates: end: 201210

REACTIONS (1)
  - Gastrointestinal haemorrhage [Unknown]
